FAERS Safety Report 20391117 (Version 1)
Quarter: 2022Q1

REPORT INFORMATION
  Report Type: Spontaneous
  Country: US (occurrence: None)
  Receive Date: 20220127
  Receipt Date: 20220127
  Transmission Date: 20220423
  Serious: Yes (Hospitalization)
  Sender: FDA-Public Use
  Company Number: None

PATIENT
  Age: 72 Year
  Sex: Male
  Weight: 92.1 kg

DRUGS (19)
  1. CASIRIVIMAB [Suspect]
     Active Substance: CASIRIVIMAB
     Indication: COVID-19
     Dosage: OTHER FREQUENCY : ONCE;?
     Route: 042
     Dates: start: 20210830, end: 20210830
  2. IMDEVIMAB [Suspect]
     Active Substance: IMDEVIMAB
     Indication: COVID-19
     Dosage: OTHER FREQUENCY : ONCE;?
     Route: 042
     Dates: start: 20210830, end: 20210830
  3. AZITHROMYCIN [Concomitant]
     Active Substance: AZITHROMYCIN
     Dates: start: 20210905, end: 20210910
  4. CEFTRIAXONE [Concomitant]
     Active Substance: CEFTRIAXONE
     Dates: start: 20210905, end: 20210907
  5. CEFAZOLIN [Concomitant]
     Active Substance: CEFAZOLIN
     Dates: start: 202109, end: 20210921
  6. DEXAMETHASONE [Concomitant]
     Active Substance: DEXAMETHASONE
     Dates: start: 20210905, end: 20210915
  7. REMDESIVIR [Concomitant]
     Active Substance: REMDESIVIR
     Dates: start: 20210905, end: 20210915
  8. COMBIVENT RESPIMAT [Concomitant]
     Active Substance: ALBUTEROL SULFATE\IPRATROPIUM BROMIDE
     Dates: start: 20210905, end: 20210921
  9. ASCORBIC ACID [Concomitant]
     Active Substance: ASCORBIC ACID
     Dates: start: 202109, end: 20210921
  10. CHOLECALCIFEROL [Concomitant]
     Active Substance: CHOLECALCIFEROL
     Dates: start: 202109, end: 20210921
  11. ZINC SULFATE [Concomitant]
     Active Substance: ZINC SULFATE
     Dates: start: 202109, end: 20210921
  12. ENOXAPARIN [Concomitant]
     Active Substance: ENOXAPARIN
     Dates: start: 20210905, end: 20210921
  13. LOSARTAN [Concomitant]
     Active Substance: LOSARTAN
     Dates: start: 202109, end: 20210921
  14. Atorovastatin [Concomitant]
     Dates: start: 20210905, end: 20210921
  15. TAMSULOSIN [Concomitant]
     Active Substance: TAMSULOSIN
     Dates: end: 20210921
  16. VALACYCLOVIR [Concomitant]
     Active Substance: VALACYCLOVIR HYDROCHLORIDE
     Dates: start: 202109, end: 20210921
  17. PANTOPRAZOLE [Concomitant]
     Active Substance: PANTOPRAZOLE
     Dates: start: 20210905, end: 20210921
  18. FUROSEMIDE [Concomitant]
     Active Substance: FUROSEMIDE
     Dates: start: 202109, end: 20210906
  19. GUAIFENESIN LA [Concomitant]
     Dates: start: 202109, end: 20210921

REACTIONS (6)
  - Herpes zoster [None]
  - Acute respiratory failure [None]
  - COVID-19 pneumonia [None]
  - Staphylococcal bacteraemia [None]
  - Acute kidney injury [None]
  - Acute kidney injury [None]

NARRATIVE: CASE EVENT DATE: 20210905
